FAERS Safety Report 18925977 (Version 2)
Quarter: 2021Q1

REPORT INFORMATION
  Report Type: Report from Study
  Country: IT (occurrence: IT)
  Receive Date: 20210222
  Receipt Date: 20210302
  Transmission Date: 20210420
  Serious: Yes (Hospitalization, Other)
  Sender: FDA-Public Use
  Company Number: IT-BRISTOL-MYERS SQUIBB COMPANY-BMS-2021-015478

PATIENT
  Age: 59 Year
  Sex: Female
  Weight: 65 kg

DRUGS (14)
  1. IPILIMUMAB SUBCUTANEOUS [Suspect]
     Active Substance: IPILIMUMAB
     Indication: MALIGNANT MELANOMA
     Dosage: 260 MILLIGRAM
     Route: 058
     Dates: start: 20201116
  2. IPILIMUMAB [Suspect]
     Active Substance: IPILIMUMAB
     Indication: MALIGNANT MELANOMA
     Dosage: 195 MILLIGRAM
     Route: 042
     Dates: start: 20210104
  3. CODEINE [Concomitant]
     Active Substance: CODEINE
     Indication: PRODUCT USED FOR UNKNOWN INDICATION
     Dosage: 90 MILLIGRAM
     Route: 048
     Dates: start: 20210105
  4. DELTACORTENE [Concomitant]
     Active Substance: PREDNISONE
     Indication: HYPERTHYROIDISM
     Dosage: 12.5 MILLIGRAM
     Route: 048
     Dates: start: 20210125
  5. VORTIOXETINE. [Concomitant]
     Active Substance: VORTIOXETINE
     Indication: PRODUCT USED FOR UNKNOWN INDICATION
     Dosage: 10 MILLIGRAM
     Route: 048
     Dates: start: 2020
  6. RECOMBINANT HUMAN HYALURONIDASE ENZYME PH20 [Suspect]
     Active Substance: HYALURONIDASE (HUMAN RECOMBINANT)
     Indication: MALIGNANT MELANOMA
     Dosage: 10600 UNIT
     Route: 058
     Dates: start: 20201116
  7. PANTOPRAZOLE [Concomitant]
     Active Substance: PANTOPRAZOLE
     Indication: PROPHYLAXIS
     Dosage: 40 MILLIGRAM
     Route: 048
     Dates: start: 2018
  8. PARACETAMOL [Concomitant]
     Active Substance: ACETAMINOPHEN
     Indication: PRODUCT USED FOR UNKNOWN INDICATION
     Dosage: 1000 MILLIGRAM
     Route: 048
     Dates: start: 20201105
  9. NIVOLUMAB [Suspect]
     Active Substance: NIVOLUMAB
     Indication: MALIGNANT MELANOMA
     Dosage: 65 MILLIGRAM
     Route: 042
     Dates: start: 20210104
  10. MOVICOL [Concomitant]
     Active Substance: POLYETHYLENE GLYCOL 3350\POTASSIUM CHLORIDE\SODIUM BICARBONATE\SODIUM CHLORIDE
     Indication: PRODUCT USED FOR UNKNOWN INDICATION
     Dosage: 1 DOSAGE FORM
     Route: 048
     Dates: start: 20210105
  11. TAPAZOLE [Concomitant]
     Active Substance: METHIMAZOLE
     Indication: HYPERTHYROIDISM
     Dosage: 1 DOSAGE FORM
     Route: 048
     Dates: start: 20210125
  12. PARACETAMOL [Concomitant]
     Active Substance: ACETAMINOPHEN
     Dosage: 1.5 GRAM
     Route: 048
     Dates: start: 20210105
  13. BISOPROLOL [Concomitant]
     Active Substance: BISOPROLOL
     Indication: PRODUCT USED FOR UNKNOWN INDICATION
     Dosage: 1.25 MILLIGRAM
     Route: 048
     Dates: start: 2016
  14. LEVETIRACETAM. [Concomitant]
     Active Substance: LEVETIRACETAM
     Indication: PROPHYLAXIS
     Dosage: 1500 MILLIGRAM
     Route: 048
     Dates: start: 202009

REACTIONS (1)
  - Epilepsy [Not Recovered/Not Resolved]

NARRATIVE: CASE EVENT DATE: 20210214
